FAERS Safety Report 8006485-6 (Version None)
Quarter: 2011Q4

REPORT INFORMATION
  Report Type: 
  Country: None (occurrence: None)
  Receive Date: 20111226
  Receipt Date: 20111219
  Transmission Date: 20120403
  Serious: Yes (Other)
  Sender: FDA-Public Use
  Company Number: PHHY2011MA110724

PATIENT
  Age: 32 Year
  Sex: Female

DRUGS (2)
  1. PEGASYS [Concomitant]
  2. SEBIVO [Suspect]
     Indication: HEPATITIS B
     Dosage: 600 MG, QD
     Route: 048

REACTIONS (3)
  - PLANTAR FASCIITIS [None]
  - BURNING SENSATION [None]
  - INSOMNIA [None]
